FAERS Safety Report 6999568-0 (Version None)
Quarter: 2010Q3

REPORT INFORMATION
  Report Type: 
  Country: None (occurrence: None)
  Receive Date: 20100920
  Receipt Date: 20071210
  Transmission Date: 20110219
  Serious: No
  Sender: FDA-Public Use
  Company Number: US-ASTRAZENECA-2006UW27727

PATIENT
  Age: 47 Year
  Sex: Female
  Weight: 96.2 kg

DRUGS (11)
  1. SEROQUEL [Suspect]
     Indication: SCHIZOPHRENIA
     Dosage: 200 TO 300 MG
     Route: 048
     Dates: start: 20040109, end: 20071101
  2. SEROQUEL [Suspect]
     Indication: BIPOLAR DISORDER
     Dosage: 200 TO 300 MG
     Route: 048
     Dates: start: 20040109, end: 20071101
  3. SEROQUEL [Suspect]
     Indication: DEPRESSION
     Dosage: 200 TO 300 MG
     Route: 048
     Dates: start: 20040109, end: 20071101
  4. SEROQUEL [Suspect]
     Route: 048
     Dates: start: 20040423
  5. SEROQUEL [Suspect]
     Route: 048
     Dates: start: 20040423
  6. SEROQUEL [Suspect]
     Route: 048
     Dates: start: 20040423
  7. GREEN TEA DIET PILL [Concomitant]
     Dates: start: 20050601
  8. RISPERDAL [Concomitant]
     Dates: start: 20020812
  9. FLUOXETINE [Concomitant]
     Dosage: 40-50 MG
     Dates: start: 20030101
  10. ZOLOFT [Concomitant]
     Dates: start: 20030101
  11. DEXATRIM [Concomitant]
     Route: 048
     Dates: start: 20060101

REACTIONS (6)
  - BLOOD CHOLESTEROL INCREASED [None]
  - BLOOD TRIGLYCERIDES INCREASED [None]
  - DIABETES MELLITUS [None]
  - HYPERGLYCAEMIA [None]
  - OBESITY [None]
  - TYPE 2 DIABETES MELLITUS [None]
